FAERS Safety Report 19179542 (Version 1)
Quarter: 2021Q2

REPORT INFORMATION
  Report Type: Spontaneous
  Country: US (occurrence: US)
  Receive Date: 20210423
  Receipt Date: 20210423
  Transmission Date: 20210717
  Serious: Yes (Disabling, Other)
  Sender: FDA-Public Use
  Company Number: None

PATIENT
  Age: 52 Year
  Sex: Male
  Weight: 85.5 kg

DRUGS (5)
  1. ARRIPRIPRIZOLE [Concomitant]
  2. LEVITHYROXIN [Concomitant]
  3. KOLONIPON [Concomitant]
  4. RISPERIDONE. [Suspect]
     Active Substance: RISPERIDONE
     Indication: SCHIZOPHRENIA
     Dosage: ?          QUANTITY:2 TABLET(S);?
     Route: 048
  5. TYLENOL [Concomitant]
     Active Substance: ACETAMINOPHEN

REACTIONS (18)
  - Dementia [None]
  - Facial paralysis [None]
  - Fatigue [None]
  - Arthritis [None]
  - Dry eye [None]
  - Eye swelling [None]
  - Constipation [None]
  - Cardiac valve disease [None]
  - Hypertension [None]
  - Renal failure [None]
  - Amnesia [None]
  - Lip swelling [None]
  - Tooth disorder [None]
  - Nausea [None]
  - Pituitary tumour [None]
  - Hepatic failure [None]
  - Dysphagia [None]
  - Hypothyroidism [None]

NARRATIVE: CASE EVENT DATE: 20120304
